FAERS Safety Report 4924343-8 (Version None)
Quarter: 2006Q1

REPORT INFORMATION
  Report Type: 
  Country: None (occurrence: None)
  Receive Date: 20060221
  Receipt Date: 20060210
  Transmission Date: 20060701
  Serious: Yes (Other)
  Sender: FDA-Public Use
  Company Number: 2005165049

PATIENT
  Sex: Male

DRUGS (10)
  1. DILANTIN [Suspect]
     Indication: ILL-DEFINED DISORDER
  2. KALETRA [Suspect]
     Indication: HIV INFECTION
  3. METOPROLOL (METOPROLOL) [Concomitant]
  4. FUZEON [Concomitant]
  5. TRUVADA              (EMTRICITABINE, TENOFOVIR DISOPROXIL FUMARATE) [Concomitant]
  6. ANDROGEL [Concomitant]
  7. ZERIT [Concomitant]
  8. VIRAMUNE [Concomitant]
  9. EPIVIR [Concomitant]
  10. CRIXIVAN [Concomitant]

REACTIONS (2)
  - ANTICONVULSANT DRUG LEVEL DECREASED [None]
  - CONVULSION [None]
